FAERS Safety Report 10202041 (Version 2)
Quarter: 2014Q2

REPORT INFORMATION
  Report Type: Spontaneous
  Country: US (occurrence: US)
  Receive Date: 20140528
  Receipt Date: 20140623
  Transmission Date: 20141212
  Serious: Yes (Hospitalization)
  Sender: FDA-Public Use
  Company Number: US-GLAXOSMITHKLINE-A1073762A

PATIENT
  Age: 92 Year
  Sex: Female

DRUGS (4)
  1. ADVAIR [Suspect]
     Indication: DYSPNOEA
     Dosage: 1PUFF TWICE PER DAY
     Route: 055
  2. SPIRIVA [Concomitant]
  3. LEVOTHYROXINE [Concomitant]
  4. VITAMINS [Concomitant]

REACTIONS (2)
  - Transient ischaemic attack [Recovered/Resolved]
  - Wound infection [Recovered/Resolved]
